FAERS Safety Report 6541544-6 (Version None)
Quarter: 2010Q1

REPORT INFORMATION
  Report Type: 
  Country: None (occurrence: None)
  Receive Date: 20100119
  Receipt Date: 20100104
  Transmission Date: 20100710
  Serious: No
  Sender: FDA-Public Use
  Company Number: US-B.I. PHARMACEUTICALS,INC./RIDGEFIELD-2008-BP-05748BP

PATIENT
  Sex: Male

DRUGS (8)
  1. SPIRIVA [Suspect]
     Indication: CHRONIC OBSTRUCTIVE PULMONARY DISEASE
     Dosage: 18 MCG
     Route: 055
     Dates: start: 20070101, end: 20070101
  2. SPIRIVA [Suspect]
     Dosage: 18 MCG
     Route: 055
     Dates: start: 20090101, end: 20090501
  3. SPIRIVA [Suspect]
     Dosage: 18 MCG
     Route: 055
     Dates: start: 20091201
  4. COUMADIN [Concomitant]
     Indication: AORTIC VALVE REPLACEMENT
  5. CHEMOTHERAPY [Concomitant]
  6. ALBUTEROL [Concomitant]
     Dates: start: 20090101, end: 20100103
  7. ATROVENT [Concomitant]
     Dates: start: 20090101, end: 20100103
  8. UNSPECIFIED MEDICATION FOR HIGH BLOOD PRESSURE [Concomitant]
     Indication: HYPERTENSION

REACTIONS (3)
  - DRY MOUTH [None]
  - GINGIVAL BLEEDING [None]
  - SPUTUM DISCOLOURED [None]
